FAERS Safety Report 4965594-6 (Version None)
Quarter: 2006Q1

REPORT INFORMATION
  Report Type: 
  Country: None (occurrence: None)
  Receive Date: 20060201
  Receipt Date: 20051008
  Transmission Date: 20060701
  Serious: No
  Sender: FDA-Public Use
  Company Number: 2005PV003201

PATIENT
  Age: 70 Year
  Sex: Female
  Weight: 85.7298 kg

DRUGS (10)
  1. BYETTA [Suspect]
     Indication: DIABETES MELLITUS NON-INSULIN-DEPENDENT
     Dosage: 5  MCG; BID; SC
     Route: 058
     Dates: start: 20051003
  2. METFORMIN [Concomitant]
  3. AMARYL [Concomitant]
  4. ACTOS [Concomitant]
  5. FOLIC ACID [Concomitant]
  6. CENTRUM [Concomitant]
  7. ASCORBIC ACID [Concomitant]
  8. GLUCOSAMINE/MSM [Concomitant]
  9. NICOMIDE [Concomitant]
  10. PREVACID [Concomitant]

REACTIONS (2)
  - BLOOD GLUCOSE INCREASED [None]
  - NAUSEA [None]
